FAERS Safety Report 6204430-7 (Version None)
Quarter: 2009Q2

REPORT INFORMATION
  Report Type: 
  Country: None (occurrence: None)
  Receive Date: 20090527
  Receipt Date: 20090525
  Transmission Date: 20091009
  Serious: Yes (Death)
  Sender: FDA-Public Use
  Company Number: CA-B.I. PHARMACEUTICALS,INC./RIDGEFIELD-2009-CN-00386CN

PATIENT
  Age: 70 Year
  Sex: Female

DRUGS (2)
  1. SPIRIVA [Suspect]
     Dosage: 18MCG
  2. ATROVENT [Suspect]

REACTIONS (2)
  - DEATH [None]
  - URINARY RETENTION [None]
